FAERS Safety Report 4367502-8 (Version None)
Quarter: 2004Q2

REPORT INFORMATION
  Report Type: 
  Country: None (occurrence: None)
  Receive Date: 20040520
  Receipt Date: 20040504
  Transmission Date: 20050107
  Serious: Yes (Other)
  Sender: FDA-Public Use
  Company Number: 601256

PATIENT
  Age: 8 Year
  Sex: Female
  Weight: 36 kg

DRUGS (1)
  1. ALBUMIN (HUMAN) [Suspect]
     Indication: NEPHROTIC SYNDROME
     Dosage: 50 ML; PRN; INTRAVENOUS
     Route: 042
     Dates: start: 20040112, end: 20040112

REACTIONS (1)
  - HYPERSENSITIVITY [None]
